FAERS Safety Report 22800258 (Version 2)
Quarter: 2023Q4

REPORT INFORMATION
  Report Type: Spontaneous
  Country: US (occurrence: US)
  Receive Date: 20230808
  Receipt Date: 20231227
  Transmission Date: 20240110
  Serious: No
  Sender: FDA-Public Use
  Company Number: US-PFIZER INC-PV202200031159

PATIENT
  Age: 77 Year
  Sex: Female
  Weight: 36.735 kg

DRUGS (3)
  1. IBRANCE [Suspect]
     Active Substance: PALBOCICLIB
     Indication: Breast cancer female
     Dosage: TAKE 1 TAB PO DAILY FOR 14 DAYS ON THEN 14 DAYS OFF
     Route: 048
  2. IBRANCE [Suspect]
     Active Substance: PALBOCICLIB
     Dosage: 14 DAYS ON, 14 DAYS OFF
     Route: 048
  3. FASLODEX [Concomitant]
     Active Substance: FULVESTRANT
     Dosage: UNK UNK, CYCLIC (Q 28 DAYS)
     Dates: start: 202205

REACTIONS (3)
  - Off label use [Unknown]
  - Product use issue [Unknown]
  - Neoplasm progression [Unknown]
